FAERS Safety Report 21640960 (Version 9)
Quarter: 2024Q4

REPORT INFORMATION
  Report Type: Report from Study
  Country: CA (occurrence: CA)
  Receive Date: 20221125
  Receipt Date: 20241218
  Transmission Date: 20250115
  Serious: No
  Sender: ROCHE
  Company Number: CA-ROCHE-3225296

PATIENT
  Sex: Female

DRUGS (4)
  1. OCREVUS [Suspect]
     Active Substance: OCRELIZUMAB
     Indication: Relapsing-remitting multiple sclerosis
     Dosage: 300 MG AT DAY 0 AND 14, THEN 600 MG EVERY 9 MONTH
     Route: 042
     Dates: start: 20181119
  2. DIPHENHYDRAMINE [Concomitant]
     Active Substance: DIPHENHYDRAMINE
     Dosage: PO/IV 30-60 MIN PRIOR TO EACH INFUSION? FREQUENCY TEXT:ONCE BEFORE INFUSION
  3. METHYLPREDNISOLONE [Concomitant]
     Active Substance: METHYLPREDNISOLONE
     Dosage: APPROXIMATELY 30 MIN PRIOR TO EACH INFUSION? FREQUENCY TEXT:ONCE BEFORE INFUSION
     Route: 042
  4. ACETAMINOPHEN [Concomitant]
     Active Substance: ACETAMINOPHEN
     Dosage: 30-60 MIN PRIOR TO EACH INFUSION? FREQUENCY TEXT:ONCE BEFORE INFUSION
     Route: 048

REACTIONS (2)
  - SARS-CoV-2 test positive [Unknown]
  - Off label use [Unknown]
